FAERS Safety Report 6025792-X (Version None)
Quarter: 2008Q4

REPORT INFORMATION
  Report Type: 
  Country: None (occurrence: None)
  Receive Date: 20081224
  Receipt Date: 20081216
  Transmission Date: 20090506
  Serious: Yes (Other)
  Sender: FDA-Public Use
  Company Number: 233953J08USA

PATIENT
  Age: 53 Year
  Sex: Female
  Weight: 51 kg

DRUGS (14)
  1. REBIF [Suspect]
     Indication: MULTIPLE SCLEROSIS
     Dosage: 44 MCG, 3 IN 1 WEEKS, SUBCUTANEOUS; 8.8 MCG; 22 MCG, 3 IN 1 WEEKS, SUBCUTANEOUS
     Route: 058
     Dates: start: 20031217, end: 20080101
  2. REBIF [Suspect]
     Indication: MULTIPLE SCLEROSIS
     Dosage: 44 MCG, 3 IN 1 WEEKS, SUBCUTANEOUS; 8.8 MCG; 22 MCG, 3 IN 1 WEEKS, SUBCUTANEOUS
     Route: 058
     Dates: start: 20080919, end: 20080101
  3. REBIF [Suspect]
     Indication: MULTIPLE SCLEROSIS
     Dosage: 44 MCG, 3 IN 1 WEEKS, SUBCUTANEOUS; 8.8 MCG; 22 MCG, 3 IN 1 WEEKS, SUBCUTANEOUS
     Route: 058
     Dates: start: 20080401, end: 20080425
  4. LEVOTHYROXINE (LEVOTHYROXINE /00068001/) [Concomitant]
  5. GABAPENTIN [Concomitant]
  6. BACLOFEN [Concomitant]
  7. CLONAZEPAM [Concomitant]
  8. ZOLOFT [Concomitant]
  9. TOPAMAX [Concomitant]
  10. TRAZODONE HCL [Concomitant]
  11. LOVAZA (FISH OIL) [Concomitant]
  12. TRICOR [Concomitant]
  13. LIPITOR [Concomitant]
  14. LASIX (FUROSEMIDE /00032601/) [Concomitant]

REACTIONS (3)
  - INFLUENZA [None]
  - LABORATORY TEST ABNORMAL [None]
  - LYMPHOPROLIFERATIVE DISORDER [None]
